FAERS Safety Report 13395281 (Version 2)
Quarter: 2017Q2

REPORT INFORMATION
  Report Type: Spontaneous
  Country: US (occurrence: US)
  Receive Date: 20170403
  Receipt Date: 20170630
  Transmission Date: 20170830
  Serious: No
  Sender: FDA-Public Use
  Company Number: US-PFIZER INC-2017090684

PATIENT
  Age: 14 Year
  Sex: Male

DRUGS (1)
  1. GENOTROPIN [Suspect]
     Active Substance: SOMATROPIN
     Dosage: 4.2 MG (SUB Q DAILY)
     Route: 058
     Dates: start: 20170308

REACTIONS (4)
  - Drug prescribing error [Unknown]
  - Back pain [Unknown]
  - Musculoskeletal pain [Unknown]
  - Injection site pain [Unknown]
